FAERS Safety Report 23079802 (Version 1)
Quarter: 2023Q4

REPORT INFORMATION
  Report Type: Spontaneous
  Country: US (occurrence: US)
  Receive Date: 20231018
  Receipt Date: 20231018
  Transmission Date: 20240109
  Serious: No
  Sender: FDA-Public Use
  Company Number: US-PFIZER INC-202300330293

PATIENT
  Age: 74 Year
  Sex: Male

DRUGS (7)
  1. PAXLOVID [Suspect]
     Active Substance: NIRMATRELVIR\RITONAVIR
     Indication: COVID-19 treatment
     Dosage: UNK
     Dates: start: 20231005, end: 20231010
  2. LISINOPRIL [Concomitant]
     Active Substance: LISINOPRIL
  3. ATORVASTATIN [Concomitant]
     Active Substance: ATORVASTATIN
  4. SERTRALINE [Concomitant]
     Active Substance: SERTRALINE HYDROCHLORIDE
  5. VITAMIN D NOS [Concomitant]
     Active Substance: VITAMIN D NOS
  6. IBUPROFEN [Concomitant]
     Active Substance: IBUPROFEN
  7. ASCORBIC ACID\FERROUS FUMARATE [Concomitant]
     Active Substance: ASCORBIC ACID\FERROUS FUMARATE

REACTIONS (4)
  - Nasal congestion [Recovering/Resolving]
  - Rhinorrhoea [Recovering/Resolving]
  - Sneezing [Recovering/Resolving]
  - Cough [Recovering/Resolving]

NARRATIVE: CASE EVENT DATE: 20231015
